FAERS Safety Report 23010814 (Version 2)
Quarter: 2023Q4

REPORT INFORMATION
  Report Type: Spontaneous
  Country: US (occurrence: US)
  Receive Date: 20230929
  Receipt Date: 20231009
  Transmission Date: 20240110
  Serious: Yes (Other)
  Sender: FDA-Public Use
  Company Number: US-JNJFOC-20230957015

PATIENT
  Age: 16 Year
  Sex: Female

DRUGS (1)
  1. DIPHENHYDRAMINE HYDROCHLORIDE [Suspect]
     Active Substance: DIPHENHYDRAMINE HYDROCHLORIDE
     Indication: Euphoric mood
     Route: 048

REACTIONS (12)
  - Hallucination, visual [Recovering/Resolving]
  - Electrocardiogram QRS complex shortened [Unknown]
  - Psychotic symptom [Unknown]
  - Intentional product misuse [Unknown]
  - Intentional overdose [Unknown]
  - Anxiety [Unknown]
  - Feeling jittery [Unknown]
  - Mucosal dryness [Unknown]
  - Sinus tachycardia [Unknown]
  - Delusion [Recovering/Resolving]
  - Confusional state [Unknown]
  - Agitation [Unknown]
